FAERS Safety Report 20967702 (Version 1)
Quarter: 2022Q2

REPORT INFORMATION
  Report Type: Report from Study
  Country: US (occurrence: US)
  Receive Date: 20220616
  Receipt Date: 20220616
  Transmission Date: 20220721
  Serious: Yes (Hospitalization)
  Sender: FDA-Public Use
  Company Number: US-ORPHANEU-2022002579

PATIENT

DRUGS (3)
  1. SIGNIFOR LAR [Suspect]
     Active Substance: PASIREOTIDE PAMOATE
     Indication: Pituitary-dependent Cushing^s syndrome
     Dosage: 20 MILLIGRAM, EVERY 28 DAYS
     Route: 030
     Dates: start: 20220401
  2. CYANOCOBALAMIN [Concomitant]
     Active Substance: CYANOCOBALAMIN
     Indication: Hypovitaminosis
     Dosage: 2000 MICROGRAM
     Route: 060
  3. PROBIOTICS NOS [Concomitant]
     Active Substance: PROBIOTICS NOS
     Indication: Dyspepsia
     Dosage: 1 DOSAGE FORM, QD

REACTIONS (7)
  - Diarrhoea [Recovered/Resolved]
  - Vomiting [Recovered/Resolved]
  - Heart rate abnormal [Unknown]
  - Tremor [Unknown]
  - Fatigue [Unknown]
  - Dizziness [Unknown]
  - Off label use [Recovered/Resolved]

NARRATIVE: CASE EVENT DATE: 20220101
